FAERS Safety Report 5406947-1 (Version None)
Quarter: 2007Q3

REPORT INFORMATION
  Report Type: 
  Country: None (occurrence: None)
  Receive Date: 20070803
  Receipt Date: 20070803
  Transmission Date: 20080115
  Serious: Yes (Death)
  Sender: FDA-Public Use
  Company Number: None

PATIENT
  Sex: Male
  Weight: 90.5 kg

DRUGS (1)
  1. TETRACAINE 2% TOPICAL SOLUTION HOSPIRA [Suspect]
     Indication: PREMEDICATION
     Dosage: 15ML X 2 DOSES BOTH W/N FEW MIN PO
     Route: 048
     Dates: start: 20070730, end: 20070730

REACTIONS (4)
  - CARDIO-RESPIRATORY ARREST [None]
  - CONVULSION [None]
  - INCORRECT ROUTE OF DRUG ADMINISTRATION [None]
  - PALLOR [None]
